FAERS Safety Report 6035416-3 (Version None)
Quarter: 2009Q1

REPORT INFORMATION
  Report Type: 
  Country: None (occurrence: None)
  Receive Date: 20090113
  Receipt Date: 20090107
  Transmission Date: 20090719
  Serious: No
  Sender: FDA-Public Use
  Company Number: US-JNJFOC-20090101443

PATIENT
  Sex: Male
  Weight: 59.42 kg

DRUGS (4)
  1. DURAGESIC-100 [Suspect]
     Indication: DEHYDRATION
     Route: 062
     Dates: start: 20080215, end: 20080215
  2. DURAGESIC-100 [Suspect]
     Indication: ANAEMIA
     Route: 062
     Dates: start: 20080215, end: 20080215
  3. DURAGESIC-100 [Suspect]
     Indication: CARDIAC FAILURE CONGESTIVE
     Route: 062
     Dates: start: 20080215, end: 20080215
  4. UNSPECIFIED MEDICATION [Concomitant]

REACTIONS (4)
  - DRUG INTOLERANCE [None]
  - DRUG PRESCRIBING ERROR [None]
  - NAUSEA [None]
  - VOMITING [None]
